FAERS Safety Report 8866786 (Version 1)
Quarter: 2012Q4

REPORT INFORMATION
  Report Type: 
  Country: US (occurrence: US)
  Receive Date: 20121025
  Receipt Date: 20121025
  Transmission Date: 20130627
  Serious: No
  Sender: FDA-Public Use
  Company Number: US-AMGEN-USASP2012013221

PATIENT
  Sex: Female

DRUGS (2)
  1. ENBREL [Suspect]
     Indication: RHEUMATOID ARTHRITIS
     Dosage: 50 mg, qwk
     Dates: start: 20101020
  2. METHOTREXATE [Concomitant]
     Dosage: 7 mg, UNK
     Dates: start: 201007

REACTIONS (2)
  - Tooth disorder [Not Recovered/Not Resolved]
  - Injection site pain [Recovered/Resolved]
